FAERS Safety Report 21705932 (Version 1)
Quarter: 2022Q4

REPORT INFORMATION
  Report Type: Spontaneous
  Country: US (occurrence: US)
  Receive Date: 20221209
  Receipt Date: 20221209
  Transmission Date: 20230113
  Serious: No
  Sender: FDA-Public Use
  Company Number: US-AMNEAL PHARMACEUTICALS-2022-AMRX-03237

PATIENT
  Age: 19 Year
  Sex: Female
  Weight: 54.4 kg

DRUGS (2)
  1. ETHINYL ESTRADIOL\NORELGESTROMIN [Suspect]
     Active Substance: ETHINYL ESTRADIOL\NORELGESTROMIN
     Indication: Product used for unknown indication
     Dosage: UNK, QD
     Route: 062
  2. ZOTEX [DEXAMETHASONE] [Concomitant]
     Indication: Product used for unknown indication
     Dosage: 10 MILLIGRAM
     Route: 048

REACTIONS (2)
  - Application site hypersensitivity [Recovering/Resolving]
  - Product adhesion issue [Unknown]

NARRATIVE: CASE EVENT DATE: 20220902
